FAERS Safety Report 19239239 (Version 1)
Quarter: 2021Q2

REPORT INFORMATION
  Report Type: Report from Study
  Country: CA (occurrence: CA)
  Receive Date: 20210510
  Receipt Date: 20210510
  Transmission Date: 20210717
  Serious: Yes (Other)
  Sender: FDA-Public Use
  Company Number: CA-TAKEDA-2021TUS026306

PATIENT
  Age: 44 Year
  Sex: Female

DRUGS (3)
  1. PREGVIT FOLIC 5 [Concomitant]
     Active Substance: ASCORBIC ACID\MINERALS\VITAMINS
     Indication: PRODUCT USED FOR UNKNOWN INDICATION
     Dosage: 5 MILLIGRAM, BID
     Route: 065
  2. ELTROXIN [Concomitant]
     Active Substance: LEVOTHYROXINE
     Indication: PRODUCT USED FOR UNKNOWN INDICATION
     Dosage: 50 MICROGRAM, QD
     Route: 065
  3. CUVITRU [Suspect]
     Active Substance: HUMAN IMMUNOGLOBULIN G
     Indication: INFERTILITY FEMALE
     Dosage: 5 GRAM, 1/WEEK
     Route: 058
     Dates: start: 20210304, end: 20210429

REACTIONS (2)
  - Abortion spontaneous [Unknown]
  - Off label use [Unknown]

NARRATIVE: CASE EVENT DATE: 20210304
